FAERS Safety Report 16974611 (Version 5)
Quarter: 2021Q2

REPORT INFORMATION
  Report Type: Spontaneous
  Country: US (occurrence: US)
  Receive Date: 20191030
  Receipt Date: 20210622
  Transmission Date: 20210716
  Serious: Yes (Other)
  Sender: FDA-Public Use
  Company Number: US-GILEAD-2019-0434773

PATIENT
  Age: 56 Year
  Sex: Male

DRUGS (29)
  1. VIREAD [Suspect]
     Active Substance: TENOFOVIR DISOPROXIL FUMARATE
     Indication: HIV INFECTION
     Dosage: UNK
     Route: 048
     Dates: start: 2002, end: 2015
  2. ZANTAC [Concomitant]
     Active Substance: RANITIDINE HYDROCHLORIDE
  3. TETRACYCLINE [Concomitant]
     Active Substance: TETRACYCLINE
  4. BACTRIM [Concomitant]
     Active Substance: SULFAMETHOXAZOLE\TRIMETHOPRIM
  5. CELEBREX [Concomitant]
     Active Substance: CELECOXIB
  6. SUSTIVA [Concomitant]
     Active Substance: EFAVIRENZ
  7. TIVICAY [Concomitant]
     Active Substance: DOLUTEGRAVIR SODIUM
  8. ACYCLOVIR [ACICLOVIR] [Concomitant]
     Active Substance: ACYCLOVIR
  9. PREZCOBIX [Concomitant]
     Active Substance: COBICISTAT\DARUNAVIR ETHANOLATE
  10. SELZENTRY [Concomitant]
     Active Substance: MARAVIROC
  11. ACETAMINOPHEN. [Concomitant]
     Active Substance: ACETAMINOPHEN
  12. EPIVIR [Concomitant]
     Active Substance: LAMIVUDINE
  13. ZERIT [Concomitant]
     Active Substance: STAVUDINE
  14. PREDNISONE. [Concomitant]
     Active Substance: PREDNISONE
  15. INTELENCE [Concomitant]
     Active Substance: ETRAVIRINE
  16. KALETRA [Concomitant]
     Active Substance: LOPINAVIR\RITONAVIR
  17. NORVIR [Concomitant]
     Active Substance: RITONAVIR
  18. VIRACEPT [Concomitant]
     Active Substance: NELFINAVIR MESYLATE
  19. DEXLANSOPRAZOLE [Concomitant]
     Active Substance: DEXLANSOPRAZOLE
  20. ASPIRINA [Concomitant]
     Active Substance: ASPIRIN
  21. CORTISONE [Concomitant]
     Active Substance: CORTISONE
  22. INVIRASE [Concomitant]
     Active Substance: SAQUINAVIR MESYLATE
  23. VIDEX [Concomitant]
     Active Substance: DIDANOSINE
  24. TRUVADA [Suspect]
     Active Substance: EMTRICITABINE\TENOFOVIR DISOPROXIL FUMARATE
     Indication: HIV INFECTION
     Route: 048
  25. BIKTARVY [Concomitant]
     Active Substance: BICTEGRAVIR SODIUM\EMTRICITABINE\TENOFOVIR ALAFENAMIDE FUMARATE
     Indication: HIV INFECTION
  26. AMOXICILLIN. [Concomitant]
     Active Substance: AMOXICILLIN
  27. TAGAMET [Concomitant]
     Active Substance: CIMETIDINE
  28. COMBIVIR [Concomitant]
     Active Substance: LAMIVUDINE\ZIDOVUDINE
  29. CRIXIVAN [Concomitant]
     Active Substance: INDINAVIR SULFATE

REACTIONS (20)
  - Vertebroplasty [Not Recovered/Not Resolved]
  - Facet joint syndrome [Not Recovered/Not Resolved]
  - Anhedonia [Not Recovered/Not Resolved]
  - Emotional distress [Not Recovered/Not Resolved]
  - Shoulder operation [Unknown]
  - Intervertebral disc degeneration [Not Recovered/Not Resolved]
  - Spinal osteoarthritis [Not Recovered/Not Resolved]
  - Bone density decreased [Unknown]
  - Lumbar vertebral fracture [Not Recovered/Not Resolved]
  - Fracture [Unknown]
  - Vertebral foraminal stenosis [Not Recovered/Not Resolved]
  - Osteoporosis [Not Recovered/Not Resolved]
  - Spinal compression fracture [Not Recovered/Not Resolved]
  - Pain [Not Recovered/Not Resolved]
  - Partner stress [Unknown]
  - Sacroiliitis [Not Recovered/Not Resolved]
  - Intervertebral disc space narrowing [Not Recovered/Not Resolved]
  - Osteopenia [Not Recovered/Not Resolved]
  - Economic problem [Not Recovered/Not Resolved]
  - Anxiety [Not Recovered/Not Resolved]

NARRATIVE: CASE EVENT DATE: 2006
